FAERS Safety Report 7637382-3 (Version None)
Quarter: 2011Q3

REPORT INFORMATION
  Report Type: 
  Country: None (occurrence: None)
  Receive Date: 20110726
  Receipt Date: 20110720
  Transmission Date: 20111222
  Serious: Yes (Hospitalization, Other)
  Sender: FDA-Public Use
  Company Number: US-PFIZER INC-2011082185

PATIENT
  Sex: Female

DRUGS (7)
  1. CHANTIX [Suspect]
     Indication: SMOKING CESSATION THERAPY
     Dosage: STARTER PACK AND 1 MG
     Dates: start: 20070702, end: 20071111
  2. PAXIL CR [Concomitant]
     Indication: PANIC ATTACK
  3. PAXIL CR [Concomitant]
     Indication: ANXIETY
  4. LEXAPRO [Concomitant]
     Indication: DEPRESSION
     Dosage: UNK
     Dates: start: 20070101, end: 20080101
  5. LEXAPRO [Concomitant]
     Indication: ANXIETY
  6. LEXAPRO [Concomitant]
     Indication: PANIC ATTACK
  7. PAXIL CR [Concomitant]
     Indication: DEPRESSION
     Dosage: UNK
     Dates: start: 20050101, end: 20080101

REACTIONS (8)
  - SUICIDAL BEHAVIOUR [None]
  - ANXIETY [None]
  - HOMICIDAL IDEATION [None]
  - AGGRESSION [None]
  - NIGHTMARE [None]
  - DEPRESSION [None]
  - PANIC ATTACK [None]
  - INSOMNIA [None]
